FAERS Safety Report 12836429 (Version 2)
Quarter: 2016Q4

REPORT INFORMATION
  Report Type: Report from Study
  Country: JP (occurrence: JP)
  Receive Date: 20161011
  Receipt Date: 20161213
  Transmission Date: 20170207
  Serious: No
  Sender: FDA-Public Use
  Company Number: JP-PFIZER INC-2016466049

PATIENT
  Age: 29 Year
  Sex: Female

DRUGS (12)
  1. HALCION [Concomitant]
     Active Substance: TRIAZOLAM
     Dosage: 0.125 MG, 1X/DAY
     Route: 048
  2. RIVOTRIL [Concomitant]
     Active Substance: CLONAZEPAM
     Dosage: 0.5 MG, 1X/DAY
     Route: 048
     Dates: end: 20160707
  3. RISUMIC [Concomitant]
     Active Substance: AMEZINIUM METILSULFATE
     Dosage: 10 MG, 2X/DAY
     Route: 048
  4. MYSLEE [Concomitant]
     Active Substance: ZOLPIDEM TARTRATE
     Dosage: 5 MG, 1X/DAY
     Route: 048
     Dates: end: 20160714
  5. PREGABALIN. [Suspect]
     Active Substance: PREGABALIN
     Dosage: 75 MG, 2X/DAY
     Route: 048
     Dates: start: 20150915
  6. AMOXAN [Concomitant]
     Active Substance: AMOXAPINE
     Dosage: 25 MG, 1X/DAY
     Route: 048
     Dates: end: 20160419
  7. PREGABALIN. [Suspect]
     Active Substance: PREGABALIN
     Dosage: 50 MG, 2X/DAY
     Route: 048
     Dates: start: 20150910, end: 20150915
  8. ALPRAZOLAM. [Concomitant]
     Active Substance: ALPRAZOLAM
     Dosage: 0.4 MG, AS NEEDED
     Route: 048
     Dates: end: 20150625
  9. PREGABALIN. [Suspect]
     Active Substance: PREGABALIN
     Dosage: 75 MG, 2X/DAY
     Route: 048
     Dates: start: 20150618, end: 20150910
  10. RIVOTRIL [Concomitant]
     Active Substance: CLONAZEPAM
     Dosage: 1.5 MG, 1X/DAY
     Route: 048
     Dates: start: 20160707
  11. FERROMIA [Concomitant]
     Active Substance: FERROUS CITRATE
     Dosage: 50 MG, 2X/DAY
     Route: 048
  12. LEXAPRO [Concomitant]
     Active Substance: ESCITALOPRAM OXALATE
     Dosage: 20 MG, 1X/DAY
     Route: 048
     Dates: start: 20151112

REACTIONS (1)
  - Exposure during pregnancy [Unknown]
